FAERS Safety Report 5610765-9 (Version None)
Quarter: 2008Q1

REPORT INFORMATION
  Report Type: 
  Country: None (occurrence: None)
  Receive Date: 20080201
  Receipt Date: 20080128
  Transmission Date: 20080703
  Serious: Yes (Other)
  Sender: FDA-Public Use
  Company Number: US-BRISTOL-MYERS SQUIBB COMPANY-14056568

PATIENT
  Sex: Female

DRUGS (9)
  1. CYCLOPHOSPHAMIDE [Suspect]
     Indication: EWING'S SARCOMA
  2. DOXORUBICIN HCL [Suspect]
     Indication: EWING'S SARCOMA
  3. VINCRISTINE SULFATE [Suspect]
     Indication: EWING'S SARCOMA
  4. IFOSFAMIDE [Suspect]
     Indication: EWING'S SARCOMA
  5. ETOPOSIDE [Suspect]
     Indication: EWING'S SARCOMA
  6. NAFARELIN ACETATE [Suspect]
     Indication: EWING'S SARCOMA
  7. RADIOTHERAPY [Suspect]
     Indication: EWING'S SARCOMA
  8. ETHINYL ESTRADIOL TAB [Suspect]
     Indication: OVARIAN FAILURE
  9. NORETHISTERONE [Suspect]
     Indication: OVARIAN FAILURE

REACTIONS (10)
  - ERYTHEMA [None]
  - HAEMATOCOLPOS [None]
  - NEUTROPENIA [None]
  - OVARIAN FAILURE [None]
  - PYREXIA [None]
  - SKIN EXFOLIATION [None]
  - URINARY TRACT DISORDER [None]
  - UTERINE HAEMORRHAGE [None]
  - VAGINAL PAIN [None]
  - VULVOVAGINAL ADHESION [None]
